FAERS Safety Report 6828175-5 (Version None)
Quarter: 2010Q3

REPORT INFORMATION
  Report Type: 
  Country: None (occurrence: None)
  Receive Date: 20100709
  Receipt Date: 20100630
  Transmission Date: 20110219
  Serious: Yes (Other)
  Sender: FDA-Public Use
  Company Number: BR-ABBOTT-10P-020-0655150-00

PATIENT
  Sex: Female
  Weight: 60 kg

DRUGS (12)
  1. HUMIRA [Suspect]
     Indication: RHEUMATOID ARTHRITIS
     Route: 058
     Dates: start: 20040101
  2. HUMIRA [Suspect]
  3. METHOTREXATE [Suspect]
     Indication: RHEUMATOID ARTHRITIS
     Route: 048
     Dates: start: 20040101
  4. CHLOROQUINE PHOSPHATE [Concomitant]
     Indication: RHEUMATOID ARTHRITIS
     Route: 048
     Dates: start: 20020101
  5. SIMVASTATIN [Concomitant]
     Indication: BLOOD CHOLESTEROL
     Route: 048
  6. CYCLOBENZAPRINE [Concomitant]
     Indication: RHEUMATOID ARTHRITIS
     Route: 048
     Dates: start: 20040101
  7. PREDNISONE [Concomitant]
     Indication: RHEUMATOID ARTHRITIS
     Route: 048
     Dates: start: 19800101
  8. PREDNISONE [Concomitant]
     Route: 048
     Dates: start: 19800101
  9. GLIBENCLAMIDE [Concomitant]
     Indication: DIABETES MELLITUS
     Dosage: 3-5MG TABLETS IN 24 HOURS
     Route: 048
     Dates: start: 20040101
  10. CAPTOPRIL [Concomitant]
     Indication: HYPERTENSION
     Dosage: 3-25MG TABLETS IN 24 HOURS
     Route: 048
     Dates: start: 20040101
  11. PROPRANOLOL [Concomitant]
     Indication: CARDIAC DISORDER
     Dosage: 2-40MG TABLETS IN 24 HOURS
     Route: 048
     Dates: start: 20060101
  12. CLONAZEPAM [Concomitant]
     Indication: INSOMNIA
     Route: 048
     Dates: start: 20000101

REACTIONS (12)
  - DIABETES MELLITUS [None]
  - FINGER DEFORMITY [None]
  - FOOT DEFORMITY [None]
  - GAIT DISTURBANCE [None]
  - HEART RATE INCREASED [None]
  - HEPATOTOXICITY [None]
  - HYPERTENSION [None]
  - LIMB DEFORMITY [None]
  - NAUSEA [None]
  - OSTEOPOROSIS [None]
  - PAIN [None]
  - VOMITING [None]
